FAERS Safety Report 9483388 (Version 1)
Quarter: 2013Q3

REPORT INFORMATION
  Report Type: Spontaneous
  Country: US (occurrence: US)
  Receive Date: 20130828
  Receipt Date: 20130828
  Transmission Date: 20140515
  Serious: Yes (Death)
  Sender: FDA-Public Use
  Company Number: US-AMGEN-KDL264245

PATIENT
  Age: 88 Year
  Sex: Male

DRUGS (7)
  1. PROCRIT [Suspect]
     Indication: ANAEMIA
     Dosage: 40000 IU, PRN
     Route: 065
     Dates: end: 200801
  2. FUROSEMIDE [Concomitant]
  3. DIGOXIN [Concomitant]
  4. CARVEDILOL [Concomitant]
  5. OMEPRAZOLE [Concomitant]
  6. ASPIRIN/DIPYRIDAMOLE [Concomitant]
  7. LOSARTAN POTASSIUM [Concomitant]

REACTIONS (1)
  - Death [Fatal]
